FAERS Safety Report 8354878-X (Version None)
Quarter: 2012Q2

REPORT INFORMATION
  Report Type: 
  Country: None (occurrence: None)
  Receive Date: 20120510
  Receipt Date: 20120507
  Transmission Date: 20120825
  Serious: Yes (Other)
  Sender: FDA-Public Use
  Company Number: 2012-002

PATIENT
  Sex: Male

DRUGS (1)
  1. PSORIASIN GEL, ALVA-AMCO PHARMACAL COMPANIES, INC. [Suspect]
     Indication: PSORIASIS
     Dosage: 1-4 TIMES DAILY, TOPICAL
     Route: 061

REACTIONS (3)
  - DIZZINESS [None]
  - ROAD TRAFFIC ACCIDENT [None]
  - DIPLOPIA [None]
